FAERS Safety Report 5913490-X (Version None)
Quarter: 2008Q4

REPORT INFORMATION
  Report Type: 
  Country: None (occurrence: None)
  Receive Date: 20081009
  Receipt Date: 20080930
  Transmission Date: 20090506
  Serious: Yes (Hospitalization)
  Sender: FDA-Public Use
  Company Number: US-JNJFOC-20080900798

PATIENT
  Sex: Female
  Weight: 83.92 kg

DRUGS (6)
  1. ORTHO EVRA [Suspect]
     Indication: DRUG USE FOR UNKNOWN INDICATION
  2. ORTHO-NOVUM [Suspect]
     Indication: CONTRACEPTION
  3. NORTREL 7/7/7 [Suspect]
     Indication: CONTRACEPTION
  4. DURABAC FORTE [Concomitant]
     Indication: DRUG USE FOR UNKNOWN INDICATION
  5. AVANDIA [Concomitant]
     Indication: DIABETES MELLITUS
  6. VISTARIL [Concomitant]
     Indication: DRUG USE FOR UNKNOWN INDICATION

REACTIONS (1)
  - SUPERIOR SAGITTAL SINUS THROMBOSIS [None]
